FAERS Safety Report 14275279 (Version 1)
Quarter: 2017Q4

REPORT INFORMATION
  Report Type: Spontaneous
  Country: BR (occurrence: BR)
  Receive Date: 20171212
  Receipt Date: 20171212
  Transmission Date: 20180321
  Serious: Yes (Other)
  Sender: FDA-Public Use
  Company Number: BR-009507513-1712BRA004034

PATIENT
  Age: 15 Year
  Sex: Female
  Weight: 42 kg

DRUGS (1)
  1. IMPLANON [Suspect]
     Active Substance: ETONOGESTREL
     Indication: CONTRACEPTION
     Dosage: SUBDERMAL IMPLANT INSERTED ON LEFT ARM
     Route: 059
     Dates: start: 20160610

REACTIONS (5)
  - Unintended pregnancy [Recovered/Resolved]
  - Exposure during pregnancy [Recovered/Resolved]
  - Inappropriate schedule of drug administration [Unknown]
  - Pregnancy with implant contraceptive [Recovered/Resolved]
  - Abortion spontaneous [Recovered/Resolved]

NARRATIVE: CASE EVENT DATE: 2016
